FAERS Safety Report 14983899 (Version 4)
Quarter: 2018Q3

REPORT INFORMATION
  Report Type: Report from Study
  Country: DE (occurrence: DE)
  Receive Date: 20180607
  Receipt Date: 20180831
  Transmission Date: 20181010
  Serious: Yes (Hospitalization, Other)
  Sender: FDA-Public Use
  Company Number: DE-PFIZER INC-2018225791

PATIENT
  Age: 49 Year
  Sex: Female
  Weight: 96 kg

DRUGS (23)
  1. ARIXTRA [Concomitant]
     Active Substance: FONDAPARINUX SODIUM
     Dosage: 5 MG, UNK
  2. SIMVASTATIN. [Concomitant]
     Active Substance: SIMVASTATIN
     Dosage: 40 MG, 1X/DAY
  3. PROLIA [Concomitant]
     Active Substance: DENOSUMAB
     Dosage: 6 UNITS PER MONTH
  4. VANCOMYCIN [Concomitant]
     Active Substance: VANCOMYCIN
     Indication: ANTIBIOTIC THERAPY
     Dosage: UNK
     Dates: start: 201803
  5. UBRETID [Concomitant]
     Active Substance: DISTIGMINE BROMIDE
     Dosage: 2 DF, 1X/DAY
     Dates: start: 201803
  6. LODOTRA [Concomitant]
     Active Substance: PREDNISONE
     Dosage: 2 MG, 1X/DAY
  7. XELJANZ [Suspect]
     Active Substance: TOFACITINIB CITRATE
     Dosage: 10 MG, UNK
     Dates: start: 20170925, end: 20171204
  8. LEVOTHYROXIN [Concomitant]
     Active Substance: LEVOTHYROXINE
     Dosage: 75 UG, 1X/DAY
  9. DENOSUMAB [Concomitant]
     Active Substance: DENOSUMAB
     Dosage: 60 MG, UNK
  10. CHOLECALCIFEROL [Concomitant]
     Active Substance: CHOLECALCIFEROL
     Dosage: UNK, WEEKLY
  11. LEVODOPA/BENSERAZIDE [Concomitant]
     Active Substance: BENSERAZIDE\LEVODOPA
     Dosage: 125 MG, 1X/DAY
  12. ROCEPHIN [Concomitant]
     Active Substance: CEFTRIAXONE SODIUM
     Indication: ANTIBIOTIC THERAPY
     Dosage: UNK
     Route: 042
     Dates: start: 201802, end: 2018
  13. PREDNISOLONE. [Concomitant]
     Active Substance: PREDNISOLONE
     Dosage: 3 MG, 1X/DAY
  14. OXYCODON [Concomitant]
     Active Substance: OXYCODONE
     Dosage: 80 MG, 1X/DAY
  15. ONDANSETRON [Concomitant]
     Active Substance: ONDANSETRON
     Dosage: 24 MG, 1X/DAY
     Dates: start: 201803
  16. TELMISARTAN. [Concomitant]
     Active Substance: TELMISARTAN
     Dosage: 80 MG, 1X/DAY
  17. FUROSEMID [Concomitant]
     Active Substance: FUROSEMIDE
     Dosage: 40 MG, 1X/DAY
  18. ZIENAM [Concomitant]
     Active Substance: CILASTATIN SODIUM\IMIPENEM
     Dosage: UNK
     Dates: start: 201802, end: 2018
  19. HUMIRA [Suspect]
     Active Substance: ADALIMUMAB
     Indication: RHEUMATOID ARTHRITIS
     Dosage: 40 MG EVERY 14 DAYS
     Route: 058
     Dates: start: 20171213, end: 20180131
  20. FENTANYL. [Concomitant]
     Active Substance: FENTANYL
     Dosage: 3 IN A DAY
     Dates: start: 201802
  21. FONDAPARINUX [Concomitant]
     Active Substance: FONDAPARINUX
     Dosage: 5 MG, UNK
  22. CLONT [Concomitant]
     Indication: ANTIBIOTIC THERAPY
     Dosage: UNK
     Dates: start: 201802, end: 2018
  23. PANTOPRAZOL [Concomitant]
     Active Substance: PANTOPRAZOLE SODIUM
     Dosage: 40 MG, 1X/DAY

REACTIONS (39)
  - Intestinal perforation [Recovering/Resolving]
  - Pyrexia [Unknown]
  - Influenza like illness [Unknown]
  - Fluid retention [Recovered/Resolved]
  - Body temperature increased [Recovering/Resolving]
  - General physical health deterioration [Unknown]
  - Inflammatory marker increased [Recovering/Resolving]
  - Hepatic steatosis [Unknown]
  - Arthralgia [Unknown]
  - Abdominal adhesions [Not Recovered/Not Resolved]
  - Joint swelling [Unknown]
  - Musculoskeletal pain [Unknown]
  - Abdominal adhesions [Unknown]
  - Sleep disorder [Unknown]
  - Nausea [Recovering/Resolving]
  - Joint range of motion decreased [Unknown]
  - Dyspnoea [Unknown]
  - Abdominal pain lower [Unknown]
  - Clostridium difficile infection [Unknown]
  - Foot fracture [Unknown]
  - Chills [Unknown]
  - Deep vein thrombosis [Unknown]
  - Nausea [Recovered/Resolved]
  - Peritonitis [Not Recovered/Not Resolved]
  - Peripheral swelling [Unknown]
  - Stress fracture [Not Recovered/Not Resolved]
  - Asthenia [Unknown]
  - Headache [Unknown]
  - Peritonitis [Unknown]
  - Vomiting [Recovering/Resolving]
  - Nasopharyngitis [Unknown]
  - Spigelian hernia [Unknown]
  - Weight increased [Unknown]
  - Abdominal pain [Recovering/Resolving]
  - Gastrointestinal necrosis [Not Recovered/Not Resolved]
  - Urinary tract infection [Unknown]
  - Osteochondrosis [Unknown]
  - Multiple organ dysfunction syndrome [Unknown]
  - Pneumonia [Unknown]

NARRATIVE: CASE EVENT DATE: 201712
